FAERS Safety Report 18634017 (Version 1)
Quarter: 2020Q4

REPORT INFORMATION
  Report Type: Report from Study
  Country: US (occurrence: US)
  Receive Date: 20201218
  Receipt Date: 20201218
  Transmission Date: 20210114
  Serious: No
  Sender: FDA-Public Use
  Company Number: US-REGENERON PHARMACEUTICALS, INC.-2020-17572

PATIENT

DRUGS (1)
  1. EYLEA [Suspect]
     Active Substance: AFLIBERCEPT
     Indication: MACULAR DEGENERATION
     Dosage: 2MG/0.05ML EVERY 4 WEEKS
     Route: 031

REACTIONS (2)
  - Product dose omission issue [Not Recovered/Not Resolved]
  - Hypertension [Not Recovered/Not Resolved]
